FAERS Safety Report 7726670-8 (Version None)
Quarter: 2011Q3

REPORT INFORMATION
  Report Type: 
  Country: None (occurrence: None)
  Receive Date: 20110902
  Receipt Date: 20110829
  Transmission Date: 20111222
  Serious: Yes (Other)
  Sender: FDA-Public Use
  Company Number: US-ABBOTT-11P-163-0850565-00

PATIENT
  Age: 49 Year
  Sex: Female
  Weight: 121.67 kg

DRUGS (5)
  1. AMBIEN [Concomitant]
     Indication: SLEEP DISORDER THERAPY
     Dosage: 1 X DAY IN EVENING
  2. WELLBUTRIN [Concomitant]
     Indication: BIPOLAR DISORDER
  3. ELAVIL [Concomitant]
     Indication: BIPOLAR DISORDER
  4. HUMIRA [Suspect]
     Indication: PRODUCT USED FOR UNKNOWN INDICATION
     Dates: start: 20090601
  5. ZOLOFT [Concomitant]
     Indication: BIPOLAR DISORDER

REACTIONS (8)
  - NERVE COMPRESSION [None]
  - INJECTION SITE REACTION [None]
  - INJECTION SITE HAEMATOMA [None]
  - HYPERTENSION [None]
  - DIABETES MELLITUS [None]
  - PAIN IN EXTREMITY [None]
  - CARPAL TUNNEL SYNDROME [None]
  - BLOOD CHOLESTEROL INCREASED [None]
